FAERS Safety Report 7141630-6 (Version None)
Quarter: 2010Q4

REPORT INFORMATION
  Report Type: 
  Country: None (occurrence: None)
  Receive Date: 20101207
  Receipt Date: 20101124
  Transmission Date: 20110411
  Serious: Yes (Other)
  Sender: FDA-Public Use
  Company Number: PHHY2010CA60427

PATIENT
  Sex: Female

DRUGS (1)
  1. SANDOSTATIN LAR [Suspect]
     Indication: NEUROENDOCRINE TUMOUR
     Dosage: 20 MG, QW4
     Route: 030
     Dates: start: 20100812

REACTIONS (5)
  - BLOOD TEST ABNORMAL [None]
  - DIARRHOEA [None]
  - NAUSEA [None]
  - NERVOUSNESS [None]
  - WHITE BLOOD CELL COUNT INCREASED [None]
